FAERS Safety Report 23465903 (Version 1)
Quarter: 2024Q1

REPORT INFORMATION
  Report Type: Spontaneous
  Country: IT (occurrence: IT)
  Receive Date: 20240201
  Receipt Date: 20240201
  Transmission Date: 20240409
  Serious: Yes (Other)
  Sender: FDA-Public Use
  Company Number: None

PATIENT
  Age: 72 Year
  Sex: Male

DRUGS (8)
  1. EDOXABAN TOSYLATE [Suspect]
     Active Substance: EDOXABAN TOSYLATE
     Indication: Atrial fibrillation
     Dosage: 60 MG, QD (LIXIANA28CPR RIV 60MG - DOSAGE SCHEME: 1 TABLET/DAY)
     Route: 048
  2. PANTOPRAZOLE [Concomitant]
     Active Substance: PANTOPRAZOLE
     Indication: Gastrooesophageal reflux disease
     Dosage: 1 DF, QD (PANTOPRAZOLE DOC 28CPR 20MG ? 1 TABLET/DAY)
     Route: 048
     Dates: start: 2023
  3. INSULIN GLARGINE [Concomitant]
     Active Substance: INSULIN GLARGINE
     Indication: Diabetes mellitus
     Dosage: 1 DF, QD (ABASAGLAR*SC 5 KWIKPEN 100U/ML ? 1 ADMINISTRATION/DAY)
     Route: 058
     Dates: start: 202210
  4. SOTALOL HYDROCHLORIDE [Concomitant]
     Active Substance: SOTALOL HYDROCHLORIDE
     Indication: Myocardial ischaemia
     Dosage: 1 DF, QD (SOTALOL HEX 40CPR 80MG ? 1 TABLET/DAY)
     Route: 048
     Dates: start: 2023
  5. GLUCOPHAGE [Concomitant]
     Active Substance: METFORMIN HYDROCHLORIDE
     Indication: Diabetes mellitus
     Dosage: 2 DF, QD (GLUCOPHAGE 40CPR RIV 850MG ? 2 CAPS/DAY)
     Route: 048
     Dates: start: 2023
  6. LASIX [Concomitant]
     Active Substance: FUROSEMIDE
     Indication: Myocardial ischaemia
     Dosage: 1 DF, QD (LASIX 30CPR 25MG ? 1 TABLET/DAY)
     Route: 048
     Dates: start: 2023
  7. RAMIPRIL [Concomitant]
     Active Substance: RAMIPRIL
     Indication: Myocardial ischaemia
     Dosage: 1 DF, QD (TRIATEC 28 CPR DIV 25MG? 1 TABLET/DAY)
     Route: 048
     Dates: start: 2023
  8. INSULIN LISPRO [Concomitant]
     Active Substance: INSULIN LISPRO
     Indication: Diabetes mellitus
     Dosage: UNK (UNSPECIFIED DOSING SCHEDULE (ADMINISTERED AFTER MEALS))
     Route: 058
     Dates: start: 2023

REACTIONS (2)
  - Renal failure [Not Recovered/Not Resolved]
  - Glomerular filtration rate decreased [Not Recovered/Not Resolved]

NARRATIVE: CASE EVENT DATE: 20230401
